FAERS Safety Report 4544792-X (Version None)
Quarter: 2004Q4

REPORT INFORMATION
  Report Type: 
  Country: None (occurrence: None)
  Receive Date: 20041230
  Receipt Date: 20041220
  Transmission Date: 20050328
  Serious: Yes (Other)
  Sender: FDA-Public Use
  Company Number: 2004110608

PATIENT
  Sex: Male

DRUGS (1)
  1. DALTEPARIN (DALTEPARIN) [Suspect]
     Indication: THROMBOSIS PROPHYLAXIS
     Dosage: (5000 I.U.) SUBCUTANEOUS
     Route: 058

REACTIONS (3)
  - DEVICE FAILURE [None]
  - INJECTION SITE REACTION [None]
  - PHARMACEUTICAL PRODUCT COMPLAINT [None]
